FAERS Safety Report 6340089-6 (Version None)
Quarter: 2009Q3

REPORT INFORMATION
  Report Type: 
  Country: None (occurrence: None)
  Receive Date: 20090903
  Receipt Date: 20090824
  Transmission Date: 20100115
  Serious: Yes (Death, Hospitalization)
  Sender: FDA-Public Use
  Company Number: US-BAXTER-2008BH001404

PATIENT
  Age: 83 Year
  Sex: Female
  Weight: 72 kg

DRUGS (10)
  1. HEPARIN SODIUM INJECTION [Suspect]
     Indication: PROPHYLAXIS
     Route: 058
     Dates: start: 20071127, end: 20071209
  2. HEPARIN SODIUM INJECTION [Suspect]
     Route: 065
     Dates: start: 20040101, end: 20070101
  3. PHOSLO [Concomitant]
     Indication: PROPHYLAXIS
     Route: 048
  4. NORVASK [Concomitant]
     Indication: HYPERTENSION
     Route: 048
  5. SIMVASTATIN [Concomitant]
     Indication: HYPERCHOLESTEROLAEMIA
     Route: 048
  6. HEPARIN SODIUM 1,000 UNITS AND SODIUM CHLORIDE 0.9% [Concomitant]
     Indication: INTRAVENOUS CATHETER MANAGEMENT
     Route: 041
     Dates: start: 20071205, end: 20071205
  7. HEPARIN [Concomitant]
     Indication: RENAL FAILURE
     Route: 010
     Dates: start: 20071101, end: 20071201
  8. SEVELAMER [Concomitant]
     Indication: DRUG USE FOR UNKNOWN INDICATION
     Route: 065
  9. ZOLOFT [Concomitant]
     Indication: DRUG USE FOR UNKNOWN INDICATION
     Route: 065
  10. ANTIBIOTICS [Concomitant]
     Indication: DRUG USE FOR UNKNOWN INDICATION
     Route: 065

REACTIONS (8)
  - ABDOMINAL PAIN [None]
  - DEATH [None]
  - DYSPNOEA [None]
  - ENDOCARDITIS [None]
  - FATIGUE [None]
  - NAUSEA [None]
  - OEDEMA PERIPHERAL [None]
  - SEPSIS [None]
